FAERS Safety Report 10879390 (Version 1)
Quarter: 2015Q1

REPORT INFORMATION
  Report Type: Spontaneous
  Country: FR (occurrence: FR)
  Receive Date: 20150302
  Receipt Date: 20150302
  Transmission Date: 20150721
  Serious: Yes (Other)
  Sender: FDA-Public Use
  Company Number: FR-SA-2015SA022447

PATIENT
  Age: 86 Year
  Sex: Female

DRUGS (9)
  1. KARDEGIC [Concomitant]
     Active Substance: ASPIRIN LYSINE
  2. BECLOMETASONE [Concomitant]
     Active Substance: BECLOMETHASONE DIPROPIONATE
  3. SINGULAIR [Concomitant]
     Active Substance: MONTELUKAST SODIUM
  4. LEXOMIL [Concomitant]
     Active Substance: BROMAZEPAM
  5. DOLIPRANE [Concomitant]
     Active Substance: ACETAMINOPHEN
  6. LOVENOX [Suspect]
     Active Substance: ENOXAPARIN SODIUM
     Route: 058
     Dates: start: 20150124, end: 20150127
  7. LANSOPRAZOLE. [Concomitant]
     Active Substance: LANSOPRAZOLE
  8. SERETIDE [Concomitant]
     Active Substance: FLUTICASONE FUROATE\SALMETEROL XINAFOATE
  9. CROMABAK [Concomitant]
     Active Substance: CROMOLYN SODIUM

REACTIONS (1)
  - Fat embolism [Recovering/Resolving]

NARRATIVE: CASE EVENT DATE: 20150127
